FAERS Safety Report 7946254-6 (Version None)
Quarter: 2011Q4

REPORT INFORMATION
  Report Type: 
  Country: None (occurrence: None)
  Receive Date: 20111129
  Receipt Date: 20111123
  Transmission Date: 20120403
  Serious: Yes (Other)
  Sender: FDA-Public Use
  Company Number: DZ-ROCHE-1016528

PATIENT
  Age: 55 Year
  Sex: Female

DRUGS (2)
  1. AVASTIN [Suspect]
     Route: 065
     Dates: start: 20110501
  2. AVASTIN [Suspect]
     Indication: COLON CANCER
     Dosage: TEMPORARILY INTERRUPTED
     Route: 065
     Dates: start: 20110109, end: 20110404

REACTIONS (2)
  - DISEASE PROGRESSION [None]
  - GENERAL PHYSICAL CONDITION ABNORMAL [None]
